FAERS Safety Report 9969759 (Version 2)
Quarter: 2014Q2

REPORT INFORMATION
  Report Type: Report from Study
  Country: US (occurrence: US)
  Receive Date: 20140306
  Receipt Date: 20140620
  Transmission Date: 20141212
  Serious: No
  Sender: FDA-Public Use
  Company Number: US-JNJFOC-20140110793

PATIENT
  Age: 65 Year
  Sex: Male

DRUGS (1)
  1. STELARA [Suspect]
     Indication: PSORIASIS
     Route: 058
     Dates: start: 20120523, end: 20121025

REACTIONS (5)
  - Pneumonia [Unknown]
  - Skeletal injury [Unknown]
  - Abdominal hernia [Unknown]
  - Abdominal pain [Unknown]
  - Hypertension [Unknown]
